FAERS Safety Report 4653789-0 (Version None)
Quarter: 2005Q2

REPORT INFORMATION
  Report Type: 
  Country: None (occurrence: None)
  Receive Date: 20050504
  Receipt Date: 20050421
  Transmission Date: 20051028
  Serious: Yes (Other)
  Sender: FDA-Public Use
  Company Number: 2005040281

PATIENT
  Age: 29 Year
  Sex: Female
  Weight: 63.5036 kg

DRUGS (3)
  1. DEPO-PROVERA [Suspect]
     Indication: CONTRACEPTION
     Dosage: 150 MG (150 MG,  1 ST INJECTION, EVERY 3 MONTHS), INTRAMUSCULAR
     Route: 030
     Dates: start: 19920101, end: 19920101
  2. DEPO-PROVERA [Suspect]
     Dosage: 150 MG, EVERY 3 MONTHS, INTRAMUSCULAR
     Route: 030
     Dates: start: 20010302, end: 20010302
  3. DEPO-PROVERA [Suspect]
     Dosage: 150 MG, LAST INJECTION, INTRAMUSCULAR
     Route: 030
     Dates: start: 20050201, end: 20050201

REACTIONS (9)
  - ANKLE FRACTURE [None]
  - CONTUSION [None]
  - FIBULA FRACTURE [None]
  - HEADACHE [None]
  - JOINT SWELLING [None]
  - PAIN [None]
  - SPINAL FRACTURE [None]
  - TENDERNESS [None]
  - WRIST FRACTURE [None]
